FAERS Safety Report 23448159 (Version 4)
Quarter: 2024Q3

REPORT INFORMATION
  Report Type: Other
  Country: US (occurrence: US)
  Receive Date: 20240126
  Receipt Date: 20240930
  Transmission Date: 20241016
  Serious: No
  Sender: TRAVERE THERAPEUTICS
  Company Number: US-TRAVERE-2023TVT00889

PATIENT
  Sex: Female

DRUGS (3)
  1. FILSPARI [Suspect]
     Active Substance: SPARSENTAN
     Indication: IgA nephropathy
     Route: 048
     Dates: start: 20231216
  2. FILSPARI [Suspect]
     Active Substance: SPARSENTAN
     Indication: Proteinuria
     Route: 048
     Dates: start: 20231219
  3. FILSPARI [Suspect]
     Active Substance: SPARSENTAN
     Dosage: 1 TABLET DAILY
     Route: 048
     Dates: start: 20240206

REACTIONS (7)
  - Malaise [Unknown]
  - Dizziness [None]
  - Mobility decreased [Unknown]
  - Wrong technique in product usage process [Unknown]
  - Fluid retention [None]
  - Joint swelling [Unknown]
  - Arthralgia [Unknown]
